FAERS Safety Report 9695445 (Version 1)
Quarter: 2013Q4

REPORT INFORMATION
  Report Type: Report from Study
  Country: VE (occurrence: VE)
  Receive Date: 20131119
  Receipt Date: 20131119
  Transmission Date: 20140711
  Serious: Yes (Hospitalization)
  Sender: FDA-Public Use
  Company Number: PHHY2013VE131681

PATIENT
  Age: 59 Year
  Sex: Female

DRUGS (3)
  1. ACLASTA [Suspect]
     Indication: OSTEOPOROSIS
     Dosage: 5 MG, ANNUAL
     Route: 042
     Dates: start: 2010
  2. ACLASTA [Suspect]
     Dosage: 5 MG, ANNUAL
     Route: 042
     Dates: start: 2011, end: 201210
  3. PROTELOS [Concomitant]
     Dosage: UNK, 1 MONTH AGO, 1 POWDER PACKET DAILY

REACTIONS (3)
  - Parathyroid tumour [Recovering/Resolving]
  - Hypercalciuria [Recovering/Resolving]
  - Back pain [Recovering/Resolving]
